FAERS Safety Report 6316636-7 (Version None)
Quarter: 2009Q3

REPORT INFORMATION
  Report Type: 
  Country: None (occurrence: None)
  Receive Date: 20090820
  Receipt Date: 20090810
  Transmission Date: 20100115
  Serious: Yes (Hospitalization)
  Sender: FDA-Public Use
  Company Number: FR-SOLVAY-00209004513

PATIENT
  Age: 15004 Day
  Sex: Male

DRUGS (5)
  1. COVERSYL 4 MG [Suspect]
     Indication: HYPERTENSION
     Dosage: DAILY DOSE: 4 MILLIGRAM(S)
     Route: 048
  2. HYPERIUM [Suspect]
     Indication: HYPERTENSION
     Dosage: DAILY DOSE: 2 MILLIGRAM(S)
     Route: 048
  3. ISOPTIN [Suspect]
     Indication: HYPERTENSION
     Dosage: DAILY DOSE: 480 MILLIGRAM(S)
     Route: 048
  4. COAPROVEL [Suspect]
     Indication: HYPERTENSION
     Dosage: DAILY DOSE: 1 DOSAGE FORM
     Route: 048
  5. SERETIDE [Suspect]
     Indication: ASTHMA
     Dosage: DAILY DOSE: 2 DOSAGE FORM
     Route: 002

REACTIONS (2)
  - HEADACHE [None]
  - PHOTOPHOBIA [None]
